FAERS Safety Report 11854211 (Version 2)
Quarter: 2016Q1

REPORT INFORMATION
  Report Type: Spontaneous
  Country: US (occurrence: US)
  Receive Date: 20151220
  Receipt Date: 20160125
  Transmission Date: 20160526
  Serious: Yes (Death)
  Sender: FDA-Public Use
  Company Number: US-009507513-1512USA008692

PATIENT
  Age: 67 Year
  Sex: Female

DRUGS (1)
  1. NOXAFIL [Suspect]
     Active Substance: POSACONAZOLE
     Dosage: 100 MG, TID
     Route: 048

REACTIONS (2)
  - Death [Fatal]
  - Inappropriate schedule of drug administration [Unknown]

NARRATIVE: CASE EVENT DATE: 201508
